FAERS Safety Report 18009145 (Version 1)
Quarter: 2020Q3

REPORT INFORMATION
  Report Type: Spontaneous
  Country: US (occurrence: US)
  Receive Date: 20200710
  Receipt Date: 20200710
  Transmission Date: 20201103
  Serious: Yes (Hospitalization, Other)
  Sender: FDA-Public Use
  Company Number: US-SAOL THERAPEUTICS-2019SAO00335

PATIENT
  Age: 23 Year
  Sex: Male
  Weight: 40.36 kg

DRUGS (4)
  1. LIORESAL [Suspect]
     Active Substance: BACLOFEN
     Indication: DYSTONIA
     Dosage: UNK; DOSE DECREASED
     Dates: start: 20190809, end: 20190820
  2. LIORESAL [Suspect]
     Active Substance: BACLOFEN
     Dosage: 500 ?G/DAY (ALSO REPORTED AS 575 ?G/DAY)
     Route: 037
     Dates: start: 2019
  3. LIORESAL [Suspect]
     Active Substance: BACLOFEN
     Indication: MUSCLE SPASTICITY
     Dosage: UNK
     Dates: start: 20120828, end: 20190809
  4. LIORESAL (ORAL) [Concomitant]
     Dosage: 20 MG, AS NEEDED
     Route: 048
     Dates: start: 20190318

REACTIONS (7)
  - Miosis [Recovered/Resolved]
  - Insomnia [Recovering/Resolving]
  - Unresponsive to stimuli [Recovered/Resolved]
  - Hypotonia [Recovered/Resolved]
  - Muscle spasms [Recovering/Resolving]
  - Overdose [Recovered/Resolved]
  - Depressed level of consciousness [Recovered/Resolved]

NARRATIVE: CASE EVENT DATE: 2019
